FAERS Safety Report 17392299 (Version 2)
Quarter: 2020Q1

REPORT INFORMATION
  Report Type: Report from Study
  Country: RO (occurrence: RO)
  Receive Date: 20200207
  Receipt Date: 20200228
  Transmission Date: 20200409
  Serious: Yes (Hospitalization)
  Sender: FDA-Public Use
  Company Number: RO-GILEAD-2020-0449592

PATIENT
  Age: 8 Year
  Sex: Male
  Weight: 30 kg

DRUGS (3)
  1. TENOFOVIR DISOPROXIL FUMARATE. [Suspect]
     Active Substance: TENOFOVIR DISOPROXIL FUMARATE
     Indication: CHRONIC HEPATITIS B
     Dosage: 250 MG, QD
     Route: 048
     Dates: start: 20190722, end: 20200127
  2. PLACEBO [Suspect]
     Active Substance: UNSPECIFIED INGREDIENT
     Indication: CHRONIC HEPATITIS B
     Dosage: UNK
     Route: 048
  3. TENOFOVIR DISOPROXIL FUMARATE. [Suspect]
     Active Substance: TENOFOVIR DISOPROXIL FUMARATE
     Dosage: 250 MG, QD
     Route: 048
     Dates: start: 20200203

REACTIONS (2)
  - Pharyngitis [Recovered/Resolved]
  - Dehydration [Recovered/Resolved with Sequelae]

NARRATIVE: CASE EVENT DATE: 20200128
